FAERS Safety Report 22189061 (Version 1)
Quarter: 2023Q2

REPORT INFORMATION
  Report Type: Spontaneous
  Country: CN (occurrence: CN)
  Receive Date: 20230410
  Receipt Date: 20230410
  Transmission Date: 20230721
  Serious: Yes (Hospitalization, Other)
  Sender: FDA-Public Use
  Company Number: None

PATIENT
  Age: 70 Year
  Sex: Male
  Weight: 47.5 kg

DRUGS (12)
  1. CYCLOPHOSPHAMIDE [Suspect]
     Active Substance: CYCLOPHOSPHAMIDE
     Indication: Diffuse large B-cell lymphoma
     Dosage: 1 G, QD, DILUTED WITH 250 ML OF SODIUM CHLORIDE, ROUTE OF ADMINISTRATION: INTRA-PUMP INJECTION
     Route: 050
     Dates: start: 20230305, end: 20230305
  2. SODIUM CHLORIDE [Suspect]
     Active Substance: SODIUM CHLORIDE
     Indication: Medication dilution
     Dosage: 7 ML, QD, USED TO DILUTE 10 MG METHOTREXATE
     Route: 037
     Dates: start: 20230303, end: 20230303
  3. SODIUM CHLORIDE [Suspect]
     Active Substance: SODIUM CHLORIDE
     Dosage: 7 ML, QD, USED TO DILUTE 50 MG CYTARABINE HYDROCHLORIDE
     Route: 037
     Dates: start: 20230303, end: 20230303
  4. SODIUM CHLORIDE [Suspect]
     Active Substance: SODIUM CHLORIDE
     Dosage: 7 ML, QD, USED TO DILUTE 10 MG DEXAMETHASONE SODIUM PHOSPHATE
     Route: 037
     Dates: start: 20230303, end: 20230303
  5. SODIUM CHLORIDE [Suspect]
     Active Substance: SODIUM CHLORIDE
     Dosage: 250 ML, QD, USED TO DILUTE 1 G CYCLOPHOSPHAMIDE, ROUTE OF ADMINISTRATION: INTRA-PUMP INJECTION
     Route: 050
     Dates: start: 20230305, end: 20230305
  6. SODIUM CHLORIDE [Suspect]
     Active Substance: SODIUM CHLORIDE
     Dosage: 50 ML, QD, USED TO DILUTE 2 MG VINCRISTINE SULFATE FOR 30 MINUTES, ROUTE OF ADMINISTRATION: INTRA-PU
     Route: 050
     Dates: start: 20230305, end: 20230305
  7. DEXTROSE [Suspect]
     Active Substance: DEXTROSE\DEXTROSE MONOHYDRATE
     Indication: Medication dilution
     Dosage: 250 ML, QD, USED TO DILUTE 40 MG DOXORUBICIN HYDROCHLORIDE FOR 2 HOURS, ROUTE OF ADMINISTRATION: INT
     Route: 050
     Dates: start: 20230305, end: 20230305
  8. METHOTREXATE [Suspect]
     Active Substance: METHOTREXATE
     Indication: Diffuse large B-cell lymphoma
     Dosage: 10 MG, QD, DILUTED WITH 7 ML OF SODIUM CHLORIDE
     Route: 037
     Dates: start: 20230303, end: 20230303
  9. DOXORUBICIN HYDROCHLORIDE [Suspect]
     Active Substance: DOXORUBICIN HYDROCHLORIDE
     Indication: Diffuse large B-cell lymphoma
     Dosage: 40 MG, QD, DILUTED WITH 250 ML OF GLUCOSE, ROUTE OF ADMINISTRATION: INTRA-PUMP INJECTION
     Route: 050
     Dates: start: 20230305, end: 20230305
  10. CYTARABINE HYDROCHLORIDE [Suspect]
     Active Substance: CYTARABINE HYDROCHLORIDE
     Indication: Diffuse large B-cell lymphoma
     Dosage: 50 MG, QD, DILUTED WITH 7 ML OF SODIUM CHLORIDE
     Route: 037
     Dates: start: 20230303, end: 20230303
  11. VINCRISTINE SULFATE [Suspect]
     Active Substance: VINCRISTINE SULFATE
     Indication: Diffuse large B-cell lymphoma
     Dosage: 2 MG, QD, DILUTED WITH 550 ML OF SODIUM CHLORIDE FOR 30 MINUTES, ROUTE OF ADMINISTRATION: INTRA-PUMP
     Route: 050
     Dates: start: 20230305, end: 20230305
  12. DEXAMETHASONE SODIUM PHOSPHATE [Suspect]
     Active Substance: DEXAMETHASONE SODIUM PHOSPHATE
     Indication: Diffuse large B-cell lymphoma
     Dosage: 10 MG, QD, DILUTED WITH 7 ML OF SODIUM CHLORIDE
     Route: 037
     Dates: start: 20230303, end: 20230303

REACTIONS (1)
  - Myelosuppression [Recovering/Resolving]

NARRATIVE: CASE EVENT DATE: 20230316
